FAERS Safety Report 4967860-7 (Version None)
Quarter: 2006Q2

REPORT INFORMATION
  Report Type: 
  Country: None (occurrence: None)
  Receive Date: 20060404
  Receipt Date: 20060323
  Transmission Date: 20061013
  Serious: Yes (Hospitalization)
  Sender: FDA-Public Use
  Company Number: FEI2006-0457

PATIENT
  Age: 28 Year
  Sex: Female

DRUGS (1)
  1. INTRAUTERINE COPPER CONTRACEPTIVE [Suspect]
     Indication: CONTRACEPTION
     Dosage: INTRA-UTERINE
     Route: 015
     Dates: start: 20000101

REACTIONS (11)
  - ABDOMINAL ADHESIONS [None]
  - CALCULUS BLADDER [None]
  - COMPLICATION OF DEVICE REMOVAL [None]
  - DISEASE RECURRENCE [None]
  - IUD MIGRATION [None]
  - MENORRHAGIA [None]
  - MENSTRUATION IRREGULAR [None]
  - PELVIC PAIN [None]
  - POLLAKIURIA [None]
  - URINARY TRACT INFECTION [None]
  - UTERINE PERFORATION [None]
